FAERS Safety Report 13286392 (Version 1)
Quarter: 2017Q1

REPORT INFORMATION
  Report Type: Spontaneous
  Country: CN (occurrence: CN)
  Receive Date: 20170301
  Receipt Date: 20170301
  Transmission Date: 20170428
  Serious: Yes (Other)
  Sender: FDA-Public Use
  Company Number: PHHY2017CN029830

PATIENT
  Age: 18 Year
  Sex: Female
  Weight: 48 kg

DRUGS (22)
  1. VALPROIC ACID SANDOZ [Interacting]
     Active Substance: VALPROIC ACID
     Indication: SEIZURE
     Dosage: 0.4 G, Q6H (IVGTT)
     Route: 065
  2. GLYCERIN AND FRUCTOSE [Concomitant]
     Indication: DEHYDRATION
     Dosage: 250 ML, QD (IVGTT)
     Route: 042
  3. CEFOPERAZONE SODIUM AND SULBACTAM SODIUM [Concomitant]
     Active Substance: CEFOPERAZONE SODIUM\SULBACTAM SODIUM
     Indication: ANTIBIOTIC THERAPY
     Dosage: 3 G, Q8H
     Route: 042
  4. CARBAMAZEPINE. [Interacting]
     Active Substance: CARBAMAZEPINE
     Indication: EPILEPSY
     Dosage: 0.2 G, BID
     Route: 065
  5. CARBAMAZEPINE. [Interacting]
     Active Substance: CARBAMAZEPINE
     Indication: STATUS EPILEPTICUS
     Dosage: 0.4 G, BID (NASAL FEEDING)
     Route: 065
  6. VALPROIC ACID SANDOZ [Interacting]
     Active Substance: VALPROIC ACID
     Indication: STATUS EPILEPTICUS
     Dosage: 0.4 G, Q8H (IVGTT)
     Route: 042
  7. MANNITOL. [Concomitant]
     Active Substance: MANNITOL
     Indication: INTRACRANIAL PRESSURE INCREASED
  8. VALPROIC ACID. [Suspect]
     Active Substance: VALPROIC ACID
     Indication: SEIZURE
  9. GLYCERIN AND FRUCTOSE [Concomitant]
     Indication: INTRACRANIAL PRESSURE INCREASED
  10. CEFOPERAZONE SODIUM AND TAZOBACTAM SODIUM [Concomitant]
     Active Substance: CEFOPERAZONE\TAZOBACTAM SODIUM
     Indication: INFECTION
     Dosage: 2 G, UNK (IVGTT)
     Route: 042
  11. VALPROIC ACID SANDOZ [Interacting]
     Active Substance: VALPROIC ACID
     Indication: EPILEPSY
     Dosage: 0.4 G, BID (IVGTT)
     Route: 042
  12. MEROPENEM. [Suspect]
     Active Substance: MEROPENEM
     Indication: ANTIBIOTIC THERAPY
     Dosage: 1 G, Q8H (IVGTT)
     Route: 065
  13. PHENOBARBITAL. [Interacting]
     Active Substance: PHENOBARBITAL
     Indication: SEIZURE
     Dosage: 100 MG, Q8H
     Route: 030
  14. ACYCLOVIR. [Concomitant]
     Active Substance: ACYCLOVIR
     Indication: ANTIVIRAL TREATMENT
     Dosage: 500 MG, Q8H (IVGTT)
     Route: 065
  15. MIDAZOLAM [Concomitant]
     Active Substance: MIDAZOLAM HYDROCHLORIDE
     Indication: SEDATION
     Dosage: 50 MG, UNK (IVGTT)
     Route: 042
  16. VANCOMYCIN HYDROCHLORIDE. [Concomitant]
     Active Substance: VANCOMYCIN HYDROCHLORIDE
     Indication: INFECTION PROPHYLAXIS
     Dosage: 1 G, Q8H (IVGTT)
     Route: 042
  17. CARBAMAZEPINE. [Interacting]
     Active Substance: CARBAMAZEPINE
     Indication: SEIZURE
  18. VALPROIC ACID. [Suspect]
     Active Substance: VALPROIC ACID
     Indication: EPILEPSY
     Dosage: 0.2 G, BID
     Route: 065
  19. PROPOFOL. [Concomitant]
     Active Substance: PROPOFOL
     Indication: SEDATION
     Dosage: 50 MG, UNK
     Route: 042
  20. VALPROIC ACID. [Suspect]
     Active Substance: VALPROIC ACID
     Indication: STATUS EPILEPTICUS
  21. DIAZEPAM. [Concomitant]
     Active Substance: DIAZEPAM
     Indication: SEDATION
     Dosage: 10 MG, UNK
     Route: 042
  22. MANNITOL. [Concomitant]
     Active Substance: MANNITOL
     Indication: DEHYDRATION
     Dosage: 125 ML, Q12H (IVGTT)
     Route: 042

REACTIONS (2)
  - Drug interaction [Unknown]
  - Contraindicated product administered [Unknown]
